FAERS Safety Report 18468172 (Version 1)
Quarter: 2020Q4

REPORT INFORMATION
  Report Type: Spontaneous
  Country: MX (occurrence: MX)
  Receive Date: 20201105
  Receipt Date: 20201105
  Transmission Date: 20210114
  Serious: Yes (Hospitalization)
  Sender: FDA-Public Use
  Company Number: MX-ROCHE-2707398

PATIENT
  Sex: Male
  Weight: 97 kg

DRUGS (1)
  1. RIVOTRIL [Suspect]
     Active Substance: CLONAZEPAM
     Indication: ANXIETY
     Dosage: 4 DROPS IN THE MORNING AND 4 DROPS IN THE NIGHT
     Route: 048
     Dates: start: 2007

REACTIONS (5)
  - Fatigue [Not Recovered/Not Resolved]
  - Cholelithiasis [Recovered/Resolved]
  - Arthralgia [Not Recovered/Not Resolved]
  - Suture insertion [Not Recovered/Not Resolved]
  - Dizziness [Recovered/Resolved]

NARRATIVE: CASE EVENT DATE: 2010
